FAERS Safety Report 23567905 (Version 2)
Quarter: 2025Q2

REPORT INFORMATION
  Report Type: Spontaneous
  Country: US (occurrence: US)
  Receive Date: 20240226
  Receipt Date: 20250510
  Transmission Date: 20250717
  Serious: No
  Sender: SANOFI AVENTIS
  Company Number: US-SA-SAC20240220001295

PATIENT
  Sex: Male

DRUGS (2)
  1. DUPIXENT [Suspect]
     Active Substance: DUPILUMAB
     Indication: Dermatitis atopic
     Dosage: 300 MG, QOW
     Route: 058
     Dates: start: 20240217
  2. MELATONIN [Concomitant]
     Active Substance: MELATONIN

REACTIONS (8)
  - Discomfort [Unknown]
  - Sleep disorder due to general medical condition, insomnia type [Unknown]
  - Perioral dermatitis [Unknown]
  - Condition aggravated [Unknown]
  - Pruritus [Unknown]
  - Insomnia [Unknown]
  - Product dose omission in error [Unknown]
  - Drug ineffective [Unknown]
